FAERS Safety Report 7701394 (Version 2)
Quarter: 2012Q4

REPORT INFORMATION
  Report Type: Report from Study
  Country: JP (occurrence: JP)
  Receive Date: 20101209
  Receipt Date: 20120906
  Transmission Date: 20130627
  Serious: Yes (Hospitalization, Other)
  Sender: FDA-Public Use
  Company Number: PHHY2010JP80917

PATIENT
  Age: 75 Year
  Sex: Female
  Weight: 47 kg

DRUGS (11)
  1. ICL670A [Suspect]
     Indication: CHRONIC LYMPHOCYTIC LEUKAEMIA
     Dosage: 1000 mg, UNK
     Route: 048
     Dates: start: 20090813, end: 20090819
  2. ICL670A [Suspect]
     Dosage: 500 mg, UNK
     Route: 048
     Dates: start: 20090826, end: 20090929
  3. NEORAL [Concomitant]
     Indication: APLASIA PURE RED CELL
     Dosage: 100 mg, UNK
     Route: 048
     Dates: start: 20090813, end: 20100217
  4. VALTREX [Concomitant]
     Dosage: 500 mg, UNK
     Route: 048
     Dates: start: 20090813, end: 20100217
  5. DOGMATYL [Concomitant]
     Dosage: 50 mg, UNK
     Route: 048
     Dates: start: 20090813, end: 20100217
  6. PARIET [Concomitant]
     Dosage: 10 mg, UNK
     Route: 048
     Dates: start: 20090813, end: 20100217
  7. MUCOSTA [Concomitant]
     Dosage: 100 mg, UNK
     Route: 048
     Dates: start: 20090813, end: 20100217
  8. BACTRAMIN [Concomitant]
     Dosage: 4 DF, UNK
     Route: 048
     Dates: start: 20090813, end: 20100217
  9. MYSLEE [Concomitant]
     Indication: INSOMNIA
     Dosage: 5 mg, UNK
     Route: 048
     Dates: start: 20090813, end: 20100217
  10. PURSENNID [Concomitant]
     Indication: CONSTIPATION
     Dosage: 24 mg, UNK
     Route: 048
     Dates: start: 20090813, end: 20100217
  11. MAGMITT [Concomitant]
     Indication: CONSTIPATION
     Dosage: 990 mg, UNK
     Route: 048
     Dates: start: 20090813, end: 20100217

REACTIONS (3)
  - Femur fracture [Recovering/Resolving]
  - Abdominal pain upper [Recovered/Resolved]
  - Stomatitis [Recovered/Resolved]
